FAERS Safety Report 4510283-5 (Version None)
Quarter: 2004Q4

REPORT INFORMATION
  Report Type: 
  Country: None (occurrence: None)
  Receive Date: 20041119
  Receipt Date: 20041104
  Transmission Date: 20050328
  Serious: Yes (Other)
  Sender: FDA-Public Use
  Company Number: M2004-1682

PATIENT
  Age: 56 Year
  Sex: Male

DRUGS (4)
  1. NYDRAZID (ISONIAZID) [Suspect]
     Indication: PULMONARY TUBERCULOSIS
  2. RIMACTANE [Suspect]
     Indication: PULMONARY TUBERCULOSIS
  3. PYRAZINAMIDE [Suspect]
     Indication: PULMONARY TUBERCULOSIS
  4. STREPTOMYCIN SULFATEM [Suspect]
     Indication: PULMONARY TUBERCULOSIS

REACTIONS (11)
  - ANOREXIA [None]
  - ATRIAL FIBRILLATION [None]
  - CARDIAC FAILURE [None]
  - CARDIOMEGALY [None]
  - HEPATIC ENZYME INCREASED [None]
  - LYMPHOCYTE STIMULATION TEST POSITIVE [None]
  - PARADOXICAL DRUG REACTION [None]
  - PERICARDIAL EFFUSION [None]
  - PERICARDITIS [None]
  - PLEURAL EFFUSION [None]
  - PYREXIA [None]
